FAERS Safety Report 6315269-6 (Version None)
Quarter: 2009Q3

REPORT INFORMATION
  Report Type: 
  Country: None (occurrence: None)
  Receive Date: 20090819
  Receipt Date: 20090811
  Transmission Date: 20100115
  Serious: Yes (Other)
  Sender: FDA-Public Use
  Company Number: PHHY2009NZ33665

PATIENT
  Sex: Female

DRUGS (3)
  1. EXELON [Suspect]
     Indication: DEMENTIA ALZHEIMER'S TYPE
     Dosage: 5MM PATCH
     Route: 062
     Dates: start: 20090401
  2. EXELON [Suspect]
     Dosage: 10 MM PATCH
     Route: 062
  3. EXELON [Suspect]
     Dosage: 5 MM PATCH
     Route: 062
     Dates: end: 20090701

REACTIONS (3)
  - BLISTER [None]
  - PRURITUS [None]
  - SKIN DISORDER [None]
